FAERS Safety Report 8251072-8 (Version None)
Quarter: 2012Q2

REPORT INFORMATION
  Report Type: 
  Country: None (occurrence: None)
  Receive Date: 20120402
  Receipt Date: 20120326
  Transmission Date: 20120825
  Serious: Yes (Hospitalization)
  Sender: FDA-Public Use
  Company Number: US-BRISTOL-MYERS SQUIBB COMPANY-13742093

PATIENT
  Age: 55 Year
  Sex: Male

DRUGS (6)
  1. IPILIMUMAB [Suspect]
     Indication: MALIGNANT MELANOMA
     Route: 042
     Dates: start: 20070307, end: 20070307
  2. PLACEBO [Suspect]
     Indication: MALIGNANT MELANOMA
     Route: 048
     Dates: start: 20070104, end: 20070112
  3. IRON [Concomitant]
     Dates: start: 20070207
  4. DILANTIN [Concomitant]
     Dates: start: 20061121
  5. PRILOSEC [Concomitant]
     Dates: start: 20070124
  6. PREDNISONE TAB [Concomitant]
     Route: 048

REACTIONS (2)
  - DIARRHOEA [None]
  - BRUCELLOSIS [None]
